FAERS Safety Report 10776834 (Version 2)
Quarter: 2015Q3

REPORT INFORMATION
  Report Type: Spontaneous
  Country: BR (occurrence: BR)
  Receive Date: 20150209
  Receipt Date: 20150928
  Transmission Date: 20151125
  Serious: No
  Sender: FDA-Public Use
  Company Number: BR-SA-2015SA012689

PATIENT
  Age: 42 Year
  Sex: Female
  Weight: 83 kg

DRUGS (3)
  1. ARAVA [Suspect]
     Active Substance: LEFLUNOMIDE
     Indication: RHEUMATOID ARTHRITIS
     Dosage: STOP DATE: UNITL THE 13TH WEEK OF PREGNANCY
     Route: 048
     Dates: start: 201405, end: 201410
  2. MINERALS NOS/FOLIC ACID/VITAMINS NOS/IRON [Concomitant]
     Indication: PREGNANCY
     Dosage: STOP DATE OF DRUG: UNTIL THE END OF PREGNANCY
     Route: 048
     Dates: start: 201501
  3. FOLIC ACID. [Concomitant]
     Active Substance: FOLIC ACID
     Indication: ARTHRITIS
     Route: 048
     Dates: start: 2012

REACTIONS (1)
  - Exposure during pregnancy [Unknown]

NARRATIVE: CASE EVENT DATE: 201405
